FAERS Safety Report 8536970 (Version 6)
Quarter: 2016Q2

REPORT INFORMATION
  Report Type: Spontaneous
  Country: US (occurrence: US)
  Receive Date: 20120430
  Receipt Date: 20160411
  Transmission Date: 20160815
  Serious: Yes (Hospitalization, Disabling, Other)
  Sender: FDA-Public Use
  Company Number: US-MERCK-1204USA04179

PATIENT
  Sex: Female
  Weight: 57.14 kg

DRUGS (5)
  1. FOSAMAX [Suspect]
     Active Substance: ALENDRONATE SODIUM
     Dosage: 5 MG, QD
     Route: 048
     Dates: start: 199810, end: 200111
  2. FOSAMAX [Suspect]
     Active Substance: ALENDRONATE SODIUM
     Indication: OSTEOPOROSIS
     Dosage: 10 MG, UNKNOWN
     Route: 048
     Dates: start: 1998, end: 20011127
  3. ALENDRONATE SODIUM. [Suspect]
     Active Substance: ALENDRONATE SODIUM
     Dosage: 70 MG, QW
     Route: 048
     Dates: start: 20061003, end: 20081024
  4. FOSAMAX [Suspect]
     Active Substance: ALENDRONATE SODIUM
     Dosage: 70 MG, QW
     Route: 048
     Dates: start: 20011127, end: 201003
  5. FOSAMAX PLUS D [Suspect]
     Active Substance: ALENDRONATE SODIUM\CHOLECALCIFEROL
     Indication: OSTEOPOROSIS
     Dosage: 70MG/5600IU
     Route: 048
     Dates: start: 20090621, end: 20100722

REACTIONS (31)
  - Glucose tolerance impaired [Unknown]
  - Tendonitis [Unknown]
  - Fall [Unknown]
  - Incisional drainage [Unknown]
  - Blood alkaline phosphatase decreased [Recovered/Resolved]
  - Impaired healing [Unknown]
  - Back pain [Unknown]
  - Atypical femur fracture [Recovered/Resolved]
  - Pain in extremity [Not Recovered/Not Resolved]
  - Thrombocytopenia [Unknown]
  - Cardiac valve disease [Unknown]
  - Atypical femur fracture [Recovered/Resolved]
  - Bone disorder [Not Recovered/Not Resolved]
  - Hyperlipidaemia [Unknown]
  - Pain in extremity [Unknown]
  - Muscle disorder [Not Recovered/Not Resolved]
  - Joint instability [Not Recovered/Not Resolved]
  - Arthralgia [Not Recovered/Not Resolved]
  - Colonoscopy [Unknown]
  - Osteoarthritis [Unknown]
  - Hypermobility syndrome [Unknown]
  - Cataract [Unknown]
  - Limb asymmetry [Unknown]
  - Blood cholesterol increased [Unknown]
  - Macular degeneration [Unknown]
  - Gait disturbance [Unknown]
  - Bursitis [Unknown]
  - Neck pain [Unknown]
  - Anaemia postoperative [Unknown]
  - Mammogram [Not Recovered/Not Resolved]
  - Hypertension [Unknown]

NARRATIVE: CASE EVENT DATE: 20021130
